FAERS Safety Report 14457024 (Version 1)
Quarter: 2018Q1

REPORT INFORMATION
  Report Type: Spontaneous
  Country: US (occurrence: US)
  Receive Date: 20180127
  Receipt Date: 20180127
  Transmission Date: 20180509
  Serious: No
  Sender: FDA-Public Use
  Company Number: None

PATIENT
  Sex: Male

DRUGS (1)
  1. CAPECITABINE. [Suspect]
     Active Substance: CAPECITABINE
     Indication: OESOPHAGEAL CARCINOMA
     Dosage: 1000MG TWICE DAILY FOR 14 DAYS ON THEN 7 DAYS OFF ORALLY
     Route: 048
     Dates: start: 20171220

REACTIONS (1)
  - Vision blurred [None]
